FAERS Safety Report 13345470 (Version 2)
Quarter: 2017Q1

REPORT INFORMATION
  Report Type: Spontaneous
  Country: US (occurrence: US)
  Receive Date: 20170317
  Receipt Date: 20170328
  Transmission Date: 20170428
  Serious: Yes (Other)
  Sender: FDA-Public Use
  Company Number: US-009507513-1703USA004312

PATIENT
  Age: 19 Year
  Sex: Female
  Weight: 54.42 kg

DRUGS (2)
  1. ATARAX [Concomitant]
     Active Substance: HYDROXYZINE HYDROCHLORIDE
     Dosage: UNK, PRN
  2. NEXPLANON [Suspect]
     Active Substance: ETONOGESTREL
     Indication: CONTRACEPTION
     Dosage: UNK, EVERY 3 YEARS
     Route: 059
     Dates: start: 20150721

REACTIONS (7)
  - Weight increased [Unknown]
  - Nausea [Unknown]
  - Adverse event [Unknown]
  - Unintended pregnancy [Unknown]
  - Pregnancy with implant contraceptive [Unknown]
  - Cholecystectomy [Unknown]
  - Polymenorrhoea [Unknown]

NARRATIVE: CASE EVENT DATE: 2017
